FAERS Safety Report 4503332-1 (Version None)
Quarter: 2004Q4

REPORT INFORMATION
  Report Type: 
  Country: None (occurrence: None)
  Receive Date: 20041112
  Receipt Date: 20041028
  Transmission Date: 20050328
  Serious: Yes (Death)
  Sender: FDA-Public Use
  Company Number: 2004-BP-10807RO

PATIENT
  Age: 46 Year
  Sex: Female

DRUGS (15)
  1. DEXAMETHASONE [Suspect]
     Indication: MULTIPLE MYELOMA
     Dosage: PO
     Route: 048
     Dates: start: 20011216, end: 20011218
  2. GENASENSE [Suspect]
     Indication: MULTIPLE MYELOMA
     Dosage: IV
     Route: 042
     Dates: start: 20011212, end: 20011219
  3. GENASENSE [Suspect]
     Indication: MULTIPLE MYELOMA
     Dosage: IV
     Route: 042
     Dates: start: 20011226, end: 20011229
  4. PAMIDRONATE DISODIUM [Concomitant]
  5. BACTRIM [Concomitant]
  6. RANITIDINE [Concomitant]
  7. SENNA (SENNA ALEXANDRINA) [Concomitant]
  8. VITAMIN B6 [Concomitant]
  9. LEVOTHYROXINE SODIUM [Concomitant]
  10. MEDROXYPROGESTERONE ACETATE [Concomitant]
  11. VELVET GLOVE (HERBAL PREPARTION) [Concomitant]
  12. WARFARIN SODIUM [Concomitant]
  13. IBUPROFEN [Concomitant]
  14. ACETAMINOPHEN [Concomitant]
  15. OXYCODONE (OXYCODONE) [Concomitant]

REACTIONS (6)
  - BEDRIDDEN [None]
  - DISEASE PROGRESSION [None]
  - MULTIPLE MYELOMA [None]
  - PAIN IN EXTREMITY [None]
  - REFUSAL OF TREATMENT BY PATIENT [None]
  - TREATMENT NONCOMPLIANCE [None]
